FAERS Safety Report 4588326-2 (Version None)
Quarter: 2005Q1

REPORT INFORMATION
  Report Type: 
  Country: None (occurrence: None)
  Receive Date: 20050216
  Receipt Date: 20050202
  Transmission Date: 20050727
  Serious: Yes (Death, Hospitalization)
  Sender: FDA-Public Use
  Company Number: DE_041114622

PATIENT
  Age: 65 Year
  Sex: Male

DRUGS (3)
  1. GEMZAR [Suspect]
     Indication: BLADDER CANCER
     Dates: start: 20011220, end: 20040818
  2. GEMZAR [Suspect]
     Indication: METASTASIS
     Dates: start: 20011220, end: 20040818
  3. GEMZAR [Suspect]

REACTIONS (8)
  - DRUG TOXICITY [None]
  - HAEMODIALYSIS [None]
  - HEPATIC FAILURE [None]
  - METASTASES TO LIVER [None]
  - METASTASES TO SKIN [None]
  - MULTI-ORGAN FAILURE [None]
  - RENAL FAILURE [None]
  - SEPTIC SHOCK [None]
